FAERS Safety Report 16133610 (Version 1)
Quarter: 2019Q1

REPORT INFORMATION
  Report Type: Spontaneous
  Country: PT (occurrence: PT)
  Receive Date: 20190329
  Receipt Date: 20190329
  Transmission Date: 20190418
  Serious: Yes (Hospitalization, Other)
  Sender: FDA-Public Use
  Company Number: PT-ACCORD-116669

PATIENT
  Age: 73 Year
  Sex: Male

DRUGS (4)
  1. OSELTAMIVIR/OSELTAMIVIR PHOSPHATE [Concomitant]
     Dosage: BID
  2. AZATHIOPRINE. [Concomitant]
     Active Substance: AZATHIOPRINE
     Route: 065
  3. MYCOPHENOLIC ACID. [Suspect]
     Active Substance: MYCOPHENOLIC ACID
     Indication: MYASTHENIA GRAVIS
     Route: 065
  4. PIPERACILLIN/TAZOBACTAM [Concomitant]

REACTIONS (10)
  - Rhonchi [Recovering/Resolving]
  - Sputum purulent [Recovering/Resolving]
  - Myalgia [Recovering/Resolving]
  - Lung consolidation [Recovering/Resolving]
  - Leukocytosis [Recovering/Resolving]
  - Pyrexia [Recovering/Resolving]
  - Off label use [Unknown]
  - Aspergillus infection [Recovering/Resolving]
  - Wheezing [Recovering/Resolving]
  - Dyspnoea [Recovering/Resolving]
